FAERS Safety Report 15405890 (Version 1)
Quarter: 2018Q3

REPORT INFORMATION
  Report Type: Spontaneous
  Country: IN (occurrence: IN)
  Receive Date: 20180920
  Receipt Date: 20180920
  Transmission Date: 20181010
  Serious: Yes (Hospitalization, Other)
  Sender: FDA-Public Use
  Company Number: IN-LUPIN LIMITED-2018-06392

PATIENT
  Age: 50 Year
  Sex: Male

DRUGS (1)
  1. RIFAMPIN. [Suspect]
     Active Substance: RIFAMPIN
     Indication: LEPROSY
     Dosage: UNK
     Route: 065
     Dates: start: 201708

REACTIONS (4)
  - Haemoptysis [None]
  - Hyperbilirubinaemia [None]
  - Thrombocytopenia [Recovered/Resolved]
  - Purpura [None]
